FAERS Safety Report 17108995 (Version 1)
Quarter: 2019Q4

REPORT INFORMATION
  Report Type: Report from Study
  Country: DE (occurrence: DE)
  Receive Date: 20191204
  Receipt Date: 20191204
  Transmission Date: 20200122
  Serious: Yes (Hospitalization)
  Sender: FDA-Public Use
  Company Number: DE-ROCHE-769699

PATIENT
  Age: 53 Year
  Sex: Male
  Weight: 62 kg

DRUGS (7)
  1. CELLULOSE [Concomitant]
     Active Substance: POWDERED CELLULOSE
     Route: 065
     Dates: start: 20110331, end: 20110402
  2. CAPECITABINE. [Suspect]
     Active Substance: CAPECITABINE
     Indication: COLORECTAL CANCER METASTATIC
     Route: 048
     Dates: start: 20110330
  3. CELLONDAN [Concomitant]
     Route: 065
     Dates: start: 20110331, end: 20110402
  4. ATROPIN [ATROPINE] [Concomitant]
     Route: 065
     Dates: start: 20110330, end: 20110330
  5. MCP [Concomitant]
     Active Substance: METOCLOPRAMIDE HYDROCHLORIDE
     Dosage: FREQUENCY : PRN, 120 DROPS PER DAY.
     Route: 065
     Dates: start: 201103
  6. BEVACIZUMAB. [Suspect]
     Active Substance: BEVACIZUMAB
     Indication: COLORECTAL CANCER METASTATIC
     Dosage: LAST DOSE PRIOR TO SAE : 30 MARCH 2011. FORM: VIAL.
     Route: 042
     Dates: start: 20110330
  7. IRINOTECAN [Suspect]
     Active Substance: IRINOTECAN
     Indication: COLORECTAL CANCER METASTATIC
     Dosage: LAST DOSE PRIOR TO SAE : 04/APR/2011. FORM: VIALS.
     Route: 042
     Dates: start: 20110330

REACTIONS (3)
  - Fall [Recovering/Resolving]
  - Nausea [Recovering/Resolving]
  - Vomiting [Recovering/Resolving]

NARRATIVE: CASE EVENT DATE: 20110404
